FAERS Safety Report 12579505 (Version 3)
Quarter: 2018Q4

REPORT INFORMATION
  Report Type: Report from Study
  Country: US (occurrence: US)
  Receive Date: 20160721
  Receipt Date: 20181226
  Transmission Date: 20190204
  Serious: Yes (Disabling)
  Sender: FDA-Public Use
  Company Number: US-ROCHE-1796209

PATIENT
  Age: 75 Year
  Sex: Female
  Weight: 45.9 kg

DRUGS (16)
  1. VITAMIN D3 [Concomitant]
     Active Substance: CHOLECALCIFEROL
     Route: 048
     Dates: start: 2008
  2. NORVASC [Concomitant]
     Active Substance: AMLODIPINE BESYLATE
     Indication: HYPERTENSION
     Route: 048
     Dates: start: 20150730
  3. ZOFRAN [Concomitant]
     Active Substance: ONDANSETRON HYDROCHLORIDE
     Indication: NAUSEA
     Route: 048
     Dates: start: 20151202
  4. CELEXA [Concomitant]
     Active Substance: CITALOPRAM HYDROBROMIDE
     Indication: DEPRESSION
     Route: 048
     Dates: start: 20150505
  5. OMEGA 3 [Concomitant]
     Active Substance: OMEGA-3 FATTY ACIDS
     Route: 048
     Dates: start: 2008
  6. FIBER [Concomitant]
     Active Substance: PSYLLIUM HUSK
     Indication: CONSTIPATION
     Route: 048
     Dates: start: 2008
  7. COMPAZINE [Concomitant]
     Active Substance: PROCHLORPERAZINE MALEATE
     Indication: NAUSEA
     Route: 048
     Dates: start: 20151203
  8. LEVOTHROID [Concomitant]
     Active Substance: LEVOTHYROXINE SODIUM
     Indication: HYPOTHYROIDISM
     Route: 048
     Dates: start: 20090210
  9. GARLIC. [Concomitant]
     Active Substance: GARLIC
     Route: 048
     Dates: start: 2008
  10. LIPITOR [Concomitant]
     Active Substance: ATORVASTATIN CALCIUM
     Indication: HYPERLIPIDAEMIA
     Route: 048
     Dates: start: 20150730
  11. COENZYME Q10 [Concomitant]
     Active Substance: UBIDECARENONE
     Route: 048
     Dates: start: 2008
  12. NIACIN. [Concomitant]
     Active Substance: NIACIN
     Indication: HYPERLIPIDAEMIA
     Route: 048
     Dates: start: 2008
  13. NAPROSYN [Concomitant]
     Active Substance: NAPROXEN
     Indication: ARTHRALGIA
     Route: 048
     Dates: start: 20150728
  14. ATEZOLIZUMAB. [Suspect]
     Active Substance: ATEZOLIZUMAB
     Indication: NON-SMALL CELL LUNG CANCER
     Dosage: MOST RECENT DOSE ADMINISTERED ON 04/MAY/2016
     Route: 042
     Dates: start: 20141029
  15. CALCIUM CITRATE [Concomitant]
     Active Substance: CALCIUM CITRATE
     Route: 048
     Dates: start: 2008
  16. FLAXSEED [Concomitant]
     Active Substance: FLAX SEED
     Route: 048
     Dates: start: 2008

REACTIONS (1)
  - Retinopathy [Recovered/Resolved]

NARRATIVE: CASE EVENT DATE: 20160526
